FAERS Safety Report 20363570 (Version 1)
Quarter: 2022Q1

REPORT INFORMATION
  Report Type: Spontaneous
  Country: US (occurrence: None)
  Receive Date: 20220121
  Receipt Date: 20220121
  Transmission Date: 20220424
  Serious: Yes (Other)
  Sender: FDA-Public Use
  Company Number: None

PATIENT
  Age: 51 Year
  Sex: Female
  Weight: 99 kg

DRUGS (1)
  1. VICTOZA [Suspect]
     Active Substance: LIRAGLUTIDE
     Indication: Glucose tolerance impaired
     Dosage: OTHER QUANTITY : 1.8 INJECTION(S);?FREQUENCY : DAILY;?
     Route: 058
     Dates: start: 20210901, end: 20220110

REACTIONS (5)
  - Pruritus [None]
  - Nausea [None]
  - Abdominal pain [None]
  - Vomiting [None]
  - Pancreatitis [None]

NARRATIVE: CASE EVENT DATE: 20220102
